FAERS Safety Report 20762211 (Version 1)
Quarter: 2022Q2

REPORT INFORMATION
  Report Type: Spontaneous
  Country: US (occurrence: None)
  Receive Date: 20220427
  Receipt Date: 20220427
  Transmission Date: 20220721
  Serious: Yes (Hospitalization)
  Sender: FDA-Public Use
  Company Number: None

PATIENT
  Sex: Male
  Weight: 3.6 kg

DRUGS (1)
  1. BEBTELOVIMAB [Suspect]
     Active Substance: BEBTELOVIMAB
     Indication: Respiratory distress
     Dates: start: 20220419, end: 20220419

REACTIONS (2)
  - Maternal exposure during pregnancy [None]
  - Hypercapnia [None]

NARRATIVE: CASE EVENT DATE: 20220427
